FAERS Safety Report 6384866-4 (Version None)
Quarter: 2009Q4

REPORT INFORMATION
  Report Type: 
  Country: None (occurrence: None)
  Receive Date: 20091002
  Receipt Date: 20090922
  Transmission Date: 20100525
  Serious: Yes (Hospitalization)
  Sender: FDA-Public Use
  Company Number: US-BIOGENIDEC-2009BI025622

PATIENT
  Age: 73 Year
  Sex: Female

DRUGS (1)
  1. AVONEX [Suspect]
     Indication: MULTIPLE SCLEROSIS
     Route: 030
     Dates: start: 20010101

REACTIONS (8)
  - BALANCE DISORDER [None]
  - BONE FRAGMENTATION [None]
  - FALL [None]
  - FATIGUE [None]
  - OSTEOPOROSIS [None]
  - SEASONAL ALLERGY [None]
  - SPINAL FRACTURE [None]
  - UPPER LIMB FRACTURE [None]
